FAERS Safety Report 7988737-9 (Version None)
Quarter: 2011Q4

REPORT INFORMATION
  Report Type: 
  Country: None (occurrence: None)
  Receive Date: 20111219
  Receipt Date: 20111209
  Transmission Date: 20120403
  Serious: Yes (Hospitalization)
  Sender: FDA-Public Use
  Company Number: US-BIOGENIDEC-2011BI036900

PATIENT
  Age: 51 Year
  Sex: Female

DRUGS (3)
  1. TYSABRI [Suspect]
     Indication: MULTIPLE SCLEROSIS
     Route: 042
     Dates: start: 20110222
  2. TYSABRI [Suspect]
     Route: 042
     Dates: start: 20090330, end: 20091116
  3. TYSABRI [Suspect]
     Route: 042

REACTIONS (1)
  - HYSTERECTOMY [None]
